FAERS Safety Report 10574925 (Version 1)
Quarter: 2014Q4

REPORT INFORMATION
  Report Type: Report from Study
  Country: US (occurrence: US)
  Receive Date: 20141110
  Receipt Date: 20141110
  Transmission Date: 20150529
  Serious: Yes (Hospitalization, Other)
  Sender: FDA-Public Use
  Company Number: US-ROCHE-1487134

PATIENT
  Age: 59 Year
  Sex: Male

DRUGS (4)
  1. TRC105 [Suspect]
     Active Substance: INVESTIGATIONAL PRODUCT
     Indication: RENAL CELL CARCINOMA
     Dosage: CYCLE 1: OVER 4 HOURS ON DAY 8
     Route: 042
     Dates: start: 20140505
  2. BEVACIZUMAB [Suspect]
     Active Substance: BEVACIZUMAB
     Indication: RENAL CELL CARCINOMA
     Dosage: CYCLE 1: OVER 30-90 MINS ON DAY 1 AND 15.?CYCLE 2+ : OVER 30-90 MINS ON DAY 1 AND 15.?CYCLE = 28 DAY
     Route: 042
     Dates: start: 20140505
  3. TRC105 [Suspect]
     Active Substance: INVESTIGATIONAL PRODUCT
     Dosage: CYCLE 1: OVER 4 HOURS ON DAY 15 AND 22.?CYCLE 2+ : OVER 1-4 HOURS ON DAYS 1, 8, 15, 22.
     Route: 042
  4. TRC105 [Suspect]
     Active Substance: INVESTIGATIONAL PRODUCT
     Dosage: CYCLE 1 : OVER 4 HOURS ON DAY 11
     Route: 042

REACTIONS (2)
  - Hypertension [Unknown]
  - Hypercalcaemia [Not Recovered/Not Resolved]

NARRATIVE: CASE EVENT DATE: 20140519
